FAERS Safety Report 9482150 (Version 1)
Quarter: 2013Q3

REPORT INFORMATION
  Report Type: Spontaneous
  Country: CA (occurrence: CA)
  Receive Date: 20130828
  Receipt Date: 20130828
  Transmission Date: 20140515
  Serious: Yes (Other)
  Sender: FDA-Public Use
  Company Number: CA-BAYER-2013-103483

PATIENT
  Sex: 0

DRUGS (1)
  1. STIVARGA [Suspect]

REACTIONS (2)
  - Blood creatine increased [None]
  - Renal impairment [None]
